FAERS Safety Report 13923672 (Version 1)
Quarter: 2017Q3

REPORT INFORMATION
  Report Type: Spontaneous
  Country: US (occurrence: US)
  Receive Date: 20170830
  Receipt Date: 20170830
  Transmission Date: 20171127
  Serious: No
  Sender: FDA-Public Use
  Company Number: None

PATIENT
  Age: 50 Year
  Sex: Female
  Weight: 60.75 kg

DRUGS (8)
  1. ALIGN PROBIOTIC [Concomitant]
  2. KETOCONAZOLE. [Concomitant]
     Active Substance: KETOCONAZOLE
  3. NARVAL MANDIBULAR ADVANCEMENT DEVICE [Concomitant]
  4. ICAPS [Concomitant]
     Active Substance: MINERALS\VITAMINS
  5. VITAMIN D [Concomitant]
     Active Substance: CHOLECALCIFEROL
  6. DOCICYCLINNE [Concomitant]
  7. EFFEXOR [Concomitant]
     Active Substance: VENLAFAXINE HYDROCHLORIDE
  8. XYREM [Suspect]
     Active Substance: SODIUM OXYBATE
     Indication: NARCOLEPSY
     Dosage: 1 PREMEASURED SYRING; TWICE PER NIGHT?
     Route: 048
     Dates: start: 20170830, end: 20170830

REACTIONS (11)
  - Hostility [None]
  - Agitation [None]
  - Stress [None]
  - Aggression [None]
  - Confusional state [None]
  - Anxiety [None]
  - Depression [None]
  - Migraine [None]
  - Dizziness [None]
  - Fatigue [None]
  - Lethargy [None]

NARRATIVE: CASE EVENT DATE: 20170830
